FAERS Safety Report 6960940-6 (Version None)
Quarter: 2010Q3

REPORT INFORMATION
  Report Type: 
  Country: None (occurrence: None)
  Receive Date: 20100901
  Receipt Date: 20100820
  Transmission Date: 20110219
  Serious: Yes (Hospitalization)
  Sender: FDA-Public Use
  Company Number: BE-WATSON-2010-11383

PATIENT
  Age: 13 Year
  Sex: Male
  Weight: 61 kg

DRUGS (11)
  1. OMEPRAZOLE [Suspect]
     Indication: GASTROINTESTINAL INFLAMMATION
     Dosage: 20 MG DAILY
     Route: 048
     Dates: start: 20080620
  2. SULFAMETHOXAZOLE AND TRIMETHOPRIM [Suspect]
     Indication: EAR INFECTION
     Dosage: 2X400 MG DAILY
     Route: 048
     Dates: start: 20080603
  3. METHYLPREDNISOLONE ACETATE [Suspect]
     Indication: ACUTE LEUKAEMIA
     Dosage: 3 MG
     Route: 037
     Dates: start: 20080716
  4. THIOGUANINE [Suspect]
     Indication: ACUTE LEUKAEMIA
     Dosage: 60MG/MM/DAY
     Route: 048
     Dates: start: 20080714, end: 20080728
  5. CYCLOPHOSPHAMIDE [Suspect]
     Indication: ACUTE LEUKAEMIA
     Dosage: 1000 MG/MM
     Route: 042
     Dates: start: 20080714
  6. MESNA [Suspect]
     Indication: ACUTE LEUKAEMIA
     Dosage: 1000 MG/MM
     Route: 042
     Dates: start: 20080714
  7. CYTARABINE [Suspect]
     Indication: ACUTE LEUKAEMIA
     Dosage: 75 MG/MM PER DAY
     Route: 042
     Dates: start: 20080716, end: 20080719
  8. CYTARABINE [Suspect]
     Dosage: 75 MG/MM PER DAY
     Dates: start: 20080723, end: 20080726
  9. CYTARABINE [Suspect]
     Dosage: 30 MG
     Route: 037
     Dates: start: 20080716
  10. METHOTREXATE [Suspect]
     Indication: ACUTE LEUKAEMIA
     Dosage: 12 MG
     Route: 037
     Dates: start: 20080716
  11. ONDANSETRON [Suspect]
     Indication: ACUTE LEUKAEMIA
     Dosage: 2X5MG/MM DAILY
     Dates: start: 20080714, end: 20080729

REACTIONS (1)
  - VIITH NERVE PARALYSIS [None]
